FAERS Safety Report 18986336 (Version 1)
Quarter: 2021Q1

REPORT INFORMATION
  Report Type: Spontaneous
  Country: US (occurrence: US)
  Receive Date: 20210308
  Receipt Date: 20210308
  Transmission Date: 20210420
  Serious: No
  Sender: FDA-Public Use
  Company Number: None

PATIENT

DRUGS (1)
  1. AMBRISENTAN [Suspect]
     Active Substance: AMBRISENTAN
     Indication: PULMONARY ARTERIAL HYPERTENSION
     Route: 048

REACTIONS (12)
  - Vertigo [None]
  - Headache [None]
  - Chest discomfort [None]
  - Fatigue [None]
  - Fall [None]
  - Contusion [None]
  - Flatulence [None]
  - Nasal congestion [None]
  - Balance disorder [None]
  - Dyspnoea exertional [None]
  - Dysphagia [None]
  - Rheumatoid arthritis [None]
